FAERS Safety Report 4713852-2 (Version None)
Quarter: 2005Q3

REPORT INFORMATION
  Report Type: 
  Country: None (occurrence: None)
  Receive Date: 20050712
  Receipt Date: 20041229
  Transmission Date: 20060218
  Serious: Yes (Other)
  Sender: FDA-Public Use
  Company Number: 2004232305US

PATIENT
  Age: 88 Year
  Sex: Female
  Weight: 65.76 kg

DRUGS (4)
  1. DETROL LA [Suspect]
     Indication: INCONTINENCE
     Dosage: 4 MG (4 MG, 1 IN 1 D), ORAL
     Route: 048
     Dates: start: 20040817, end: 20040902
  2. DETROL [Suspect]
     Indication: INCONTINENCE
     Dates: start: 19990101, end: 19990101
  3. ANTIHYPERTENSIVES (ANTIHYPERTENSIVES) [Concomitant]
  4. LIPITOR [Concomitant]

REACTIONS (12)
  - CONDITION AGGRAVATED [None]
  - CYSTOCELE [None]
  - DRUG DOSE OMISSION [None]
  - DRUG EFFECT DECREASED [None]
  - DRY EYE [None]
  - DRY MOUTH [None]
  - DYSPNOEA [None]
  - GLAUCOMA [None]
  - INCONTINENCE [None]
  - PANIC ATTACK [None]
  - READING DISORDER [None]
  - TENSION [None]
